FAERS Safety Report 13741843 (Version 6)
Quarter: 2019Q1

REPORT INFORMATION
  Report Type: Spontaneous
  Country: US (occurrence: US)
  Receive Date: 20170711
  Receipt Date: 20190307
  Transmission Date: 20190417
  Serious: Yes (Other)
  Sender: FDA-Public Use
  Company Number: US-PFIZER INC-2017254161

PATIENT
  Age: 60 Year
  Sex: Male
  Weight: 167.8 kg

DRUGS (10)
  1. GENOTROPIN [Suspect]
     Active Substance: SOMATROPIN
     Indication: GROWTH HORMONE DEFICIENCY
     Dosage: 0.4 MG, DAILY
     Route: 058
  2. GENOTROPIN [Suspect]
     Active Substance: SOMATROPIN
     Indication: DIABETES MELLITUS
     Dosage: 0.4 MG, DAILY
     Route: 058
     Dates: start: 201706
  3. GENOTROPIN [Suspect]
     Active Substance: SOMATROPIN
     Indication: HYPOPITUITARISM
     Dosage: 0.2 MG, DAILY
     Route: 058
     Dates: start: 20170607
  4. GENOTROPIN [Suspect]
     Active Substance: SOMATROPIN
     Indication: BRAIN OPERATION
  5. BENICAR [Concomitant]
     Active Substance: OLMESARTAN MEDOXOMIL
     Indication: HYPERTENSION
     Dosage: UNK
  6. INSULIN [Concomitant]
     Active Substance: INSULIN NOS
     Dosage: UNK
  7. GENOTROPIN [Suspect]
     Active Substance: SOMATROPIN
     Indication: OVERWEIGHT
  8. OLMESARTAN MEDOXOMIL. [Concomitant]
     Active Substance: OLMESARTAN MEDOXOMIL
     Indication: HYPERTENSION
     Dosage: 20 MG, UNK
  9. GENOTROPIN [Suspect]
     Active Substance: SOMATROPIN
     Indication: CEREBROVASCULAR ACCIDENT
     Dosage: UNK
  10. TESTOSTERONE. [Concomitant]
     Active Substance: TESTOSTERONE
     Dosage: UNK

REACTIONS (14)
  - Peripheral swelling [Unknown]
  - Speech disorder [Unknown]
  - Incorrect dose administered [Unknown]
  - Confusional state [Unknown]
  - Hearing disability [Unknown]
  - Memory impairment [Not Recovered/Not Resolved]
  - Overweight [Unknown]
  - Wrong technique in device usage process [Unknown]
  - Oedema peripheral [Unknown]
  - Fatigue [Not Recovered/Not Resolved]
  - Attention deficit/hyperactivity disorder [Unknown]
  - Blindness [Not Recovered/Not Resolved]
  - Drug ineffective [Unknown]
  - Sleep disorder [Not Recovered/Not Resolved]
